FAERS Safety Report 10041752 (Version 2)
Quarter: 2014Q1

REPORT INFORMATION
  Report Type: Report from Study
  Country: AU (occurrence: AU)
  Receive Date: 20140327
  Receipt Date: 20140327
  Transmission Date: 20141002
  Serious: Yes (Other)
  Sender: FDA-Public Use
  Company Number: AU-JNJFOC-20140301607

PATIENT
  Sex: Female

DRUGS (1)
  1. SIMPONI [Suspect]
     Indication: RHEUMATOID ARTHRITIS
     Route: 058
     Dates: start: 20130517, end: 20140228

REACTIONS (3)
  - Basal cell carcinoma [Not Recovered/Not Resolved]
  - Oesophageal candidiasis [Recovered/Resolved]
  - Lower respiratory tract infection [Recovering/Resolving]
